FAERS Safety Report 19455795 (Version 2)
Quarter: 2024Q2

REPORT INFORMATION
  Report Type: Spontaneous
  Country: FR (occurrence: FR)
  Receive Date: 20210624
  Receipt Date: 20240617
  Transmission Date: 20240716
  Serious: Yes (Hospitalization, Other)
  Sender: FDA-Public Use
  Company Number: FR-BRISTOL-MYERS SQUIBB COMPANY-BMS-2021-058512

PATIENT
  Age: 56 Year
  Sex: Male
  Weight: 90 kg

DRUGS (3)
  1. OPDIVO [Suspect]
     Active Substance: NIVOLUMAB
     Indication: Malignant melanoma
     Dosage: 1 DOSAGE FORM, Q3WK
     Route: 042
     Dates: start: 20210127, end: 20230515
  2. YERVOY [Suspect]
     Active Substance: IPILIMUMAB
     Indication: Malignant melanoma
     Dosage: 1 DOSAGE FORM, Q3WK
     Route: 042
     Dates: start: 20210127, end: 20210413
  3. LEVOTHYROXINE [Concomitant]
     Active Substance: LEVOTHYROXINE\LEVOTHYROXINE SODIUM
     Indication: Product used for unknown indication
     Dosage: UNK

REACTIONS (3)
  - Vertigo [Recovered/Resolved]
  - Deafness bilateral [Recovered/Resolved with Sequelae]
  - Uveitis [Recovered/Resolved]

NARRATIVE: CASE EVENT DATE: 20210312
